FAERS Safety Report 12521049 (Version 5)
Quarter: 2017Q1

REPORT INFORMATION
  Report Type: Report from Study
  Country: AT (occurrence: AT)
  Receive Date: 20160701
  Receipt Date: 20170215
  Transmission Date: 20170428
  Serious: Yes (Hospitalization, Other)
  Sender: FDA-Public Use
  Company Number: AT-INCYTE CORPORATION-2015IN000558

PATIENT
  Age: 74 Year
  Sex: Male
  Weight: 74 kg

DRUGS (18)
  1. JAKAVI [Suspect]
     Active Substance: RUXOLITINIB
     Dosage: 20 OT, QD
     Route: 048
     Dates: start: 20130121, end: 20130514
  2. JAKAVI [Suspect]
     Active Substance: RUXOLITINIB
     Dosage: 5 MG, QD
     Route: 048
     Dates: start: 20160309, end: 20160309
  3. EXJADE [Concomitant]
     Active Substance: DEFERASIROX
  4. EXJADE [Concomitant]
     Active Substance: DEFERASIROX
  5. DIGIMERCK [Concomitant]
     Active Substance: DIGITOXIN
     Dosage: 0.07 MG, QD
  6. EXJADE [Concomitant]
     Active Substance: DEFERASIROX
  7. OLEOVIT D3 [Concomitant]
     Active Substance: CHOLECALCIFEROL
     Indication: PRODUCT USED FOR UNKNOWN INDICATION
     Dosage: 40 GTT, QD
     Route: 048
  8. OLEOVIT D3 [Concomitant]
     Active Substance: CHOLECALCIFEROL
  9. JAKAVI [Suspect]
     Active Substance: RUXOLITINIB
     Dosage: 15 MG, QD
     Route: 048
     Dates: start: 20130515, end: 20130923
  10. OLEOVIT D3 [Concomitant]
     Active Substance: CHOLECALCIFEROL
  11. JAKAVI [Suspect]
     Active Substance: RUXOLITINIB
     Dosage: 15 MG, QD
     Route: 048
     Dates: start: 20130924, end: 20141026
  12. DIGIMERCK [Concomitant]
     Active Substance: DIGITOXIN
     Indication: PRODUCT USED FOR UNKNOWN INDICATION
     Dosage: UNKNOWN
     Route: 048
  13. DIGIMERCK [Concomitant]
     Active Substance: DIGITOXIN
     Dosage: 0.07 MG, QD
  14. DIGIMERCK [Concomitant]
     Active Substance: DIGITOXIN
     Dosage: 0.07 MG, QD
  15. JAKAVI [Suspect]
     Active Substance: RUXOLITINIB
     Indication: MYELOFIBROSIS
     Dosage: 30 MG, QD
     Route: 048
     Dates: start: 20121009, end: 20130120
  16. JAKAVI [Suspect]
     Active Substance: RUXOLITINIB
     Dosage: 10 MG, QD
     Route: 048
     Dates: start: 20141027, end: 20160308
  17. OLEOVIT D3 [Concomitant]
     Active Substance: CHOLECALCIFEROL
  18. EXJADE [Concomitant]
     Active Substance: DEFERASIROX
     Indication: PRODUCT USED FOR UNKNOWN INDICATION
     Dosage: 250 MG, BID
     Route: 048

REACTIONS (15)
  - Myelodysplastic syndrome [Unknown]
  - Myelofibrosis [Unknown]
  - Iron metabolism disorder [Unknown]
  - Hyperuricaemia [Unknown]
  - Anaemia [Unknown]
  - Nasopharyngitis [Recovered/Resolved]
  - Pulmonary hypertension [Recovered/Resolved]
  - Pulmonary arterial hypertension [Unknown]
  - Lung disorder [Unknown]
  - Atrial fibrillation [Unknown]
  - Splenomegaly [Unknown]
  - Cardiovascular disorder [Unknown]
  - Chronic obstructive pulmonary disease [Unknown]
  - Essential hypertension [Unknown]
  - Haematoma [Not Recovered/Not Resolved]

NARRATIVE: CASE EVENT DATE: 20131127
